FAERS Safety Report 12471125 (Version 1)
Quarter: 2016Q2

REPORT INFORMATION
  Report Type: Spontaneous
  Country: US (occurrence: None)
  Receive Date: 20160615
  Receipt Date: 20160615
  Transmission Date: 20160815
  Serious: No
  Sender: FDA-Public Use
  Company Number: None

PATIENT
  Age: 63 Year
  Sex: Female

DRUGS (5)
  1. GLUCOSAMINE [Concomitant]
     Active Substance: GLUCOSAMINE
  2. VITAMIN D3 [Concomitant]
     Active Substance: CHOLECALCIFEROL
  3. COQ10 [Concomitant]
     Active Substance: UBIDECARENONE
  4. IBRANCE [Suspect]
     Active Substance: PALBOCICLIB
     Indication: NEOPLASM MALIGNANT
     Route: 048
     Dates: start: 20160506
  5. NORVASC [Concomitant]
     Active Substance: AMLODIPINE BESYLATE

REACTIONS (2)
  - Neutropenia [None]
  - Therapy change [None]

NARRATIVE: CASE EVENT DATE: 20160606
